FAERS Safety Report 14926716 (Version 1)
Quarter: 2018Q2

REPORT INFORMATION
  Report Type: Spontaneous
  Country: FR (occurrence: FR)
  Receive Date: 20180523
  Receipt Date: 20180523
  Transmission Date: 20180711
  Serious: Yes (Hospitalization)
  Sender: FDA-Public Use
  Company Number: FR-TEVA-2018-FR-895959

PATIENT
  Age: 65 Year
  Sex: Male

DRUGS (7)
  1. LIPTRUZET [Concomitant]
     Active Substance: ATORVASTATIN CALCIUM\EZETIMIBE
     Route: 065
  2. RAMIPRIL. [Concomitant]
     Active Substance: RAMIPRIL
     Route: 065
  3. METFORMINE [Concomitant]
     Active Substance: METFORMIN HYDROCHLORIDE
     Route: 065
  4. KETOPROFENE [Suspect]
     Active Substance: KETOPROFEN
     Indication: TENSION HEADACHE
     Route: 048
     Dates: start: 201711, end: 201712
  5. EZETROL [Concomitant]
     Active Substance: EZETIMIBE
     Route: 065
  6. PYOSTACINE [Suspect]
     Active Substance: PRISTINAMYCIN
     Indication: ERYSIPELAS
     Dosage: .
     Route: 048
     Dates: start: 20171202, end: 20171217
  7. AMOXICILLIN. [Suspect]
     Active Substance: AMOXICILLIN
     Indication: ERYSIPELAS
     Dosage: .
     Route: 048
     Dates: start: 20171110, end: 20171120

REACTIONS (2)
  - Pruritus [Recovering/Resolving]
  - Rash maculo-papular [Recovering/Resolving]

NARRATIVE: CASE EVENT DATE: 20171219
